FAERS Safety Report 5491987-7 (Version None)
Quarter: 2007Q4

REPORT INFORMATION
  Report Type: 
  Country: None (occurrence: None)
  Receive Date: 20071022
  Receipt Date: 20071017
  Transmission Date: 20080405
  Serious: Yes (Other)
  Sender: FDA-Public Use
  Company Number: B0477247A

PATIENT
  Sex: Male

DRUGS (1)
  1. PAROXETINE [Suspect]
     Indication: DRUG USE FOR UNKNOWN INDICATION
     Dosage: 20MG PER DAY
     Dates: start: 20010101

REACTIONS (10)
  - AGORAPHOBIA [None]
  - BORDERLINE PERSONALITY DISORDER [None]
  - DRUG ABUSER [None]
  - DRUG WITHDRAWAL SYNDROME [None]
  - OBSESSIVE-COMPULSIVE DISORDER [None]
  - PARANOIA [None]
  - SCHIZOAFFECTIVE DISORDER [None]
  - SOCIAL PHOBIA [None]
  - SUICIDE ATTEMPT [None]
  - VIOLENCE-RELATED SYMPTOM [None]
